FAERS Safety Report 14682370 (Version 1)
Quarter: 2018Q1

REPORT INFORMATION
  Report Type: Spontaneous
  Country: FR (occurrence: FR)
  Receive Date: 20180326
  Receipt Date: 20180326
  Transmission Date: 20180509
  Serious: Yes (Other)
  Sender: FDA-Public Use
  Company Number: FR-MERCK KGAA-2044570

PATIENT
  Age: 59 Year
  Sex: Female

DRUGS (1)
  1. NOVOTHYROX [Suspect]
     Active Substance: LEVOTHYROXINE SODIUM
     Indication: PRODUCT USED FOR UNKNOWN INDICATION

REACTIONS (35)
  - Arrhythmia [None]
  - Fatigue [None]
  - Apallic syndrome [None]
  - Platelet count decreased [None]
  - Anger [None]
  - Crying [None]
  - Social avoidant behaviour [None]
  - Apolipoprotein B increased [None]
  - Tooth discolouration [None]
  - Glycosylated haemoglobin increased [None]
  - Impaired work ability [None]
  - Loss of personal independence in daily activities [None]
  - Blood creatine phosphokinase abnormal [None]
  - Presyncope [None]
  - Gastrointestinal disorder [None]
  - Walking disability [None]
  - Mean cell volume decreased [None]
  - Glomerular filtration rate increased [None]
  - Tachycardia [None]
  - Dizziness [None]
  - Bedridden [None]
  - Fall [None]
  - Pain [None]
  - Aortic valve disease [None]
  - Vomiting [None]
  - Personal relationship issue [None]
  - White blood cell count increased [None]
  - Blood glucose increased [None]
  - High density lipoprotein decreased [None]
  - Apolipoprotein A-I decreased [None]
  - Neutrophil count increased [None]
  - Impaired driving ability [None]
  - Asthenia [None]
  - Blood cholesterol increased [None]
  - Total cholesterol/HDL ratio increased [None]

NARRATIVE: CASE EVENT DATE: 2017
